FAERS Safety Report 8855164 (Version 1)
Quarter: 2012Q4

REPORT INFORMATION
  Report Type: 
  Country: US (occurrence: US)
  Receive Date: 20121023
  Receipt Date: 20121023
  Transmission Date: 20130627
  Serious: No
  Sender: FDA-Public Use
  Company Number: US-AMGEN-USASP2012053445

PATIENT
  Age: 40 Year
  Sex: Female

DRUGS (17)
  1. ENBREL [Suspect]
     Indication: RHEUMATOID ARTHRITIS
     Dosage: 50 mg, qwk
     Route: 058
     Dates: start: 20111117
  2. ARAVA [Concomitant]
     Dosage: 20 mg, qd
     Route: 048
     Dates: start: 20120106
  3. ZANTAC [Concomitant]
     Dosage: 300 mg, qd
     Route: 048
     Dates: start: 20120106
  4. TRAMADOL [Concomitant]
     Dosage: 50 mg, 1-2 tid prn
     Dates: start: 20120106
  5. MOBIC [Concomitant]
     Dosage: 15 mg, qd as needed
     Route: 048
     Dates: start: 20120106
  6. PRILOSEC                           /00661201/ [Concomitant]
     Dosage: 20 mg, qd
     Route: 048
     Dates: start: 20120106
  7. NEURONTIN [Concomitant]
     Dosage: 600 mg, 1/2 tab twice daily and 1 tab bedtime
     Dates: start: 20120106
  8. METHOTREXATE SODIUM [Concomitant]
     Dosage: 2.5 mg, qwk
     Route: 048
     Dates: start: 20120430
  9. METHOTREXATE SODIUM [Concomitant]
     Dosage: 1 mg, qwk
     Route: 030
     Dates: start: 20120106
  10. PREDNISONE [Concomitant]
     Dosage: 5 mg, 4 times/wk
  11. VICODIN [Concomitant]
     Dosage: 5 mg-500mg every 4 hours as needed
     Dates: start: 20120106
  12. POTASSIUM CHLORIDE [Concomitant]
     Dosage: 10 mEq, qd
     Route: 048
     Dates: start: 20120106
  13. METFORMIN [Concomitant]
     Dosage: 500 mg, bid
     Route: 048
     Dates: start: 20120106
  14. LEVOTHYROXINE [Concomitant]
     Dosage: 125 mug, qd
     Route: 048
     Dates: start: 20120106
  15. FUROSEMIDE [Concomitant]
     Dosage: 40 mg, bid
     Route: 048
     Dates: start: 20120106
  16. FLUOXETINE [Concomitant]
     Dosage: 40 mg, bid
     Route: 048
     Dates: start: 20120106
  17. ESTERIFIED ESTROGENS AND METHYLTESTOSTERONE [Concomitant]
     Dosage: 1 UNK, qd
     Dates: start: 20120106

REACTIONS (11)
  - Stomatitis [Recovered/Resolved]
  - Skin ulcer [Recovered/Resolved]
  - Dry skin [Recovered/Resolved]
  - Oedema peripheral [Recovered/Resolved]
  - Swelling face [Recovered/Resolved]
  - Nausea [Recovered/Resolved]
  - Psoriatic arthropathy [Unknown]
  - Joint effusion [Unknown]
  - Arthralgia [Unknown]
  - Malaise [Unknown]
  - Fatigue [Unknown]
